FAERS Safety Report 8942673 (Version 3)
Quarter: 2015Q3

REPORT INFORMATION
  Report Type: Report from Study
  Country: FR (occurrence: FR)
  Receive Date: 20121204
  Receipt Date: 20150706
  Transmission Date: 20151125
  Serious: Yes (Other)
  Sender: FDA-Public Use
  Company Number: FR-PFIZER INC-2012300361

PATIENT
  Age: 64 Year
  Sex: Female
  Weight: 46 kg

DRUGS (5)
  1. ARACYTINE [Suspect]
     Active Substance: CYTARABINE
     Indication: ACUTE MYELOID LEUKAEMIA
     Dosage: DAY 1 TO DAY 7
     Dates: start: 20100508
  2. CORGARD [Concomitant]
     Active Substance: NADOLOL
     Indication: HYPERTENSION
     Dosage: 80 MG/DAY
     Route: 048
  3. ARACYTINE [Suspect]
     Active Substance: CYTARABINE
     Dosage: 2800 MG/DAY, DAY 1 TO DAY 8
     Route: 042
     Dates: start: 20100624, end: 20100702
  4. DAUNORUBICIN [Suspect]
     Active Substance: DAUNORUBICIN
     Dosage: 85 MG/DAY, DAY 1 TO DAY 3
     Dates: start: 20100624, end: 20100627
  5. DAUNORUBICIN [Suspect]
     Active Substance: DAUNORUBICIN
     Indication: ACUTE MYELOID LEUKAEMIA
     Dosage: DAY 1 TO DAY 3
     Dates: start: 20100508

REACTIONS (1)
  - Bronchopulmonary aspergillosis [Recovered/Resolved]

NARRATIVE: CASE EVENT DATE: 20100714
